FAERS Safety Report 16092413 (Version 3)
Quarter: 2019Q2

REPORT INFORMATION
  Report Type: Report from Study
  Country: CN (occurrence: CN)
  Receive Date: 20190319
  Receipt Date: 20190405
  Transmission Date: 20190711
  Serious: Yes (Hospitalization)
  Sender: FDA-Public Use
  Company Number: CN-GILEAD-2019-0396843

PATIENT
  Age: 47 Year
  Sex: Male
  Weight: 67.5 kg

DRUGS (6)
  1. RIBONUCLEIC ACID II [Suspect]
     Active Substance: RIBONUCLEIC ACID
     Indication: PROPHYLAXIS
     Dosage: 150 MG, QD
     Route: 065
     Dates: start: 201903
  2. DEOXYRIBONUCLEOTIDE SODIUM [Suspect]
     Active Substance: INVESTIGATIONAL PRODUCT
     Indication: PROPHYLAXIS
     Dosage: 100 MG, QD
     Route: 065
     Dates: start: 201903
  3. COMPOUND VITAMINES FOR INJECTION (3) [Suspect]
     Active Substance: VITAMINS
     Indication: PROPHYLAXIS
     Dosage: 10 MG, QD
     Route: 065
  4. TENOFOVIR DISOPROXIL FUMARATE. [Suspect]
     Active Substance: TENOFOVIR DISOPROXIL FUMARATE
     Indication: CHRONIC HEPATITIS B
     Dosage: 300 MG, QD
     Route: 048
     Dates: start: 20151229, end: 20181010
  5. TENOFOVIR ALAFENAMIDE [Suspect]
     Active Substance: TENOFOVIR ALAFENAMIDE
     Indication: CHRONIC HEPATITIS B
     Dosage: 25 MG, QD
     Route: 048
     Dates: start: 20181011
  6. COMPOUND MONOAMMONIUM GLYCYRRHIZINATE S [Suspect]
     Active Substance: AMMONIUM GLYCYRRHIZATE
     Indication: PROPHYLAXIS
     Dosage: 10 MILLIEQUIVALENT PER LITRE, QD
     Route: 065

REACTIONS (1)
  - Hepatic lesion [Not Recovered/Not Resolved]

NARRATIVE: CASE EVENT DATE: 20190313
